FAERS Safety Report 26109920 (Version 1)
Quarter: 2025Q4

REPORT INFORMATION
  Report Type: Spontaneous
  Country: US (occurrence: US)
  Receive Date: 20251201
  Receipt Date: 20251201
  Transmission Date: 20260117
  Serious: No
  Sender: Day One Biopharmaceuticals
  Company Number: US-Day One Biopharmaceuticals Inc.-2025US001807

PATIENT

DRUGS (2)
  1. OJEMDA [Suspect]
     Active Substance: TOVORAFENIB
     Indication: Product used for unknown indication
     Dosage: UNKNOWN
     Route: 065
  2. OJEMDA [Suspect]
     Active Substance: TOVORAFENIB
     Dosage: RESTARTED AT 50%
     Route: 065

REACTIONS (4)
  - Conjunctivitis [Unknown]
  - Melanocytic naevus [Unknown]
  - Skin hyperpigmentation [Unknown]
  - Rash [Unknown]
